FAERS Safety Report 7170051-5 (Version None)
Quarter: 2010Q4

REPORT INFORMATION
  Report Type: 
  Country: None (occurrence: None)
  Receive Date: 20101206
  Receipt Date: 20101118
  Transmission Date: 20110411
  Serious: Yes (Hospitalization)
  Sender: FDA-Public Use
  Company Number: 2010004392

PATIENT
  Age: 70 Year
  Sex: Female

DRUGS (5)
  1. TARCEVA [Suspect]
     Indication: NON-SMALL CELL LUNG CANCER
     Dosage: (150 MG, QD), ORAL
     Route: 048
     Dates: start: 20100210, end: 20100914
  2. ADALAT CR (NIFEDIPNE) [Concomitant]
  3. RABEPRAZOLE SODIUM [Concomitant]
  4. CANDESARTAN CILEXETIL [Concomitant]
  5. ALENDRONATE SODIUM [Concomitant]

REACTIONS (2)
  - INTERSTITIAL LUNG DISEASE [None]
  - PULMONARY EMBOLISM [None]
